FAERS Safety Report 8759554 (Version 2)
Quarter: 2012Q4

REPORT INFORMATION
  Report Type: 
  Country: US (occurrence: US)
  Receive Date: 20120829
  Receipt Date: 20121113
  Transmission Date: 20130627
  Serious: Yes (Other)
  Sender: FDA-Public Use
  Company Number: US-FRI-1000038145

PATIENT
  Sex: Female

DRUGS (2)
  1. CELEXA [Suspect]
     Indication: DEPRESSION
     Dosage: 40 MG
     Route: 064
     Dates: start: 200208, end: 20030503
  2. CELEXA [Suspect]
     Route: 063
     Dates: start: 20030503, end: 200310

REACTIONS (5)
  - Epilepsy [Not Recovered/Not Resolved]
  - Attention deficit/hyperactivity disorder [Not Recovered/Not Resolved]
  - Tooth hypoplasia [Not Recovered/Not Resolved]
  - Asthma [Not Recovered/Not Resolved]
  - Abdominal pain [Not Recovered/Not Resolved]
